FAERS Safety Report 9205274 (Version 5)
Quarter: 2013Q4

REPORT INFORMATION
  Report Type: Spontaneous
  Country: US (occurrence: US)
  Receive Date: 20130402
  Receipt Date: 20131106
  Transmission Date: 20140711
  Serious: Yes (Other)
  Sender: FDA-Public Use
  Company Number: CHPA2013US005417

PATIENT
  Age: 57 Year
  Sex: Male

DRUGS (2)
  1. VOLTAREN GEL [Suspect]
     Indication: PAIN IN EXTREMITY
     Dosage: UNK, QID
     Route: 061
     Dates: start: 20130308, end: 20130322
  2. VOLTAREN GEL [Suspect]
     Indication: INFLAMMATION

REACTIONS (12)
  - Paraesthesia [Recovered/Resolved]
  - Hypersensitivity [Recovered/Resolved]
  - Eye swelling [Recovered/Resolved]
  - Skin exfoliation [Recovered/Resolved]
  - Rash [Recovered/Resolved]
  - Lacrimation increased [Recovered/Resolved]
  - Dry skin [Not Recovered/Not Resolved]
  - Burning sensation [Recovered/Resolved]
  - Urticaria [Recovered/Resolved]
  - Skin mass [Recovered/Resolved]
  - Off label use [Unknown]
  - Therapeutic response unexpected [Unknown]
